FAERS Safety Report 9130739 (Version 1)
Quarter: 2013Q1

REPORT INFORMATION
  Report Type: Spontaneous
  Country: SE (occurrence: SE)
  Receive Date: 20130301
  Receipt Date: 20130301
  Transmission Date: 20140127
  Serious: Yes (Other)
  Sender: FDA-Public Use
  Company Number: PHHY2013SE019843

PATIENT
  Age: 65 Year
  Sex: Female

DRUGS (1)
  1. SANDOSTATIN LAR [Suspect]
     Indication: COLON CANCER
     Dosage: 20 MG, UNK
     Route: 030
     Dates: start: 20130107, end: 20130107

REACTIONS (2)
  - Chest pain [Recovered/Resolved]
  - Respiratory depression [Recovered/Resolved]
